FAERS Safety Report 12369738 (Version 1)
Quarter: 2016Q2

REPORT INFORMATION
  Report Type: Spontaneous
  Country: US (occurrence: US)
  Receive Date: 20160516
  Receipt Date: 20160516
  Transmission Date: 20160815
  Serious: No
  Sender: FDA-Public Use
  Company Number: US-009507513-1604USA012659

PATIENT
  Sex: Female

DRUGS (14)
  1. TRAMADOL HYDROCHLORIDE. [Concomitant]
     Active Substance: TRAMADOL HYDROCHLORIDE
  2. LINZESS [Concomitant]
     Active Substance: LINACLOTIDE
     Dosage: 290 MICROGRAM, QD
  3. ALLEGRA [Concomitant]
     Active Substance: FEXOFENADINE HYDROCHLORIDE
     Dosage: UNK, QD
  4. PEPCID [Concomitant]
     Active Substance: FAMOTIDINE
     Dosage: 20 MG, BID
  5. EMEND [Suspect]
     Active Substance: APREPITANT
     Indication: NAUSEA
     Dosage: UNK
     Route: 048
     Dates: start: 201602
  6. VALIUM [Concomitant]
     Active Substance: DIAZEPAM
     Dosage: 5 MG, QID
  7. ZOLOFT [Concomitant]
     Active Substance: SERTRALINE HYDROCHLORIDE
     Dosage: 15 MG, QD
  8. PHENERGAN [Concomitant]
     Active Substance: PROMETHAZINE HYDROCHLORIDE
     Dosage: 25 MG, QD, THROUGH A PORT IN HER CHEST
  9. ELAVIL (ALLOPURINOL) [Concomitant]
     Dosage: 25 MG, QD
  10. MELOXICAM. [Concomitant]
     Active Substance: MELOXICAM
     Dosage: 15 MG, TWICE A WEK
  11. LEVOTHYROXINE SODIUM. [Concomitant]
     Active Substance: LEVOTHYROXINE SODIUM
  12. SODIUM CHLORIDE. [Concomitant]
     Active Substance: SODIUM CHLORIDE
     Dosage: UNK, QD
     Route: 042
  13. ZOLOFT [Concomitant]
     Active Substance: SERTRALINE HYDROCHLORIDE
     Dosage: ONE AND HALF TABLET AT NIGHT
  14. MOVANTIK [Concomitant]
     Active Substance: NALOXEGOL OXALATE
     Dosage: 25 MG, QD

REACTIONS (3)
  - Weight decreased [Unknown]
  - Off label use [Unknown]
  - Dyspepsia [Unknown]

NARRATIVE: CASE EVENT DATE: 2016
